FAERS Safety Report 6700243-8 (Version None)
Quarter: 2010Q2

REPORT INFORMATION
  Report Type: 
  Country: None (occurrence: None)
  Receive Date: 20100426
  Receipt Date: 20100412
  Transmission Date: 20101027
  Serious: Yes (Disabling, Other)
  Sender: FDA-Public Use
  Company Number: UTKAB-10-0168

PATIENT
  Age: 52 Year
  Sex: Female

DRUGS (5)
  1. ABRAXANE [Suspect]
     Indication: BREAST CANCER
  2. LEFLUNOMIDE [Concomitant]
  3. METFORMIN HCL [Concomitant]
  4. ROSIGLITAZONE [Concomitant]
  5. TRASTUZUMAB (TRASTUZUMAB) [Concomitant]

REACTIONS (4)
  - BLINDNESS [None]
  - DRY EYE [None]
  - HYPOAESTHESIA EYE [None]
  - OPTIC NEUROPATHY [None]
